FAERS Safety Report 19403172 (Version 1)
Quarter: 2021Q2

REPORT INFORMATION
  Report Type: Spontaneous
  Country: US (occurrence: US)
  Receive Date: 20210610
  Receipt Date: 20210610
  Transmission Date: 20210717
  Serious: Yes (Hospitalization)
  Sender: FDA-Public Use
  Company Number: None

PATIENT
  Age: 57 Year
  Sex: Male

DRUGS (5)
  1. COSENTYX [Suspect]
     Active Substance: SECUKINUMAB
     Route: 058
     Dates: start: 20200805
  2. VITAMIN D [Concomitant]
     Active Substance: VITAMIN D NOS
  3. FEROSUL [Concomitant]
     Active Substance: FERROUS SULFATE
  4. VALSARTAN. [Concomitant]
     Active Substance: VALSARTAN
  5. DLMODIPINE [Concomitant]

REACTIONS (2)
  - Illness [None]
  - Therapy interrupted [None]

NARRATIVE: CASE EVENT DATE: 20210330
